FAERS Safety Report 18624951 (Version 1)
Quarter: 2020Q4

REPORT INFORMATION
  Report Type: Spontaneous
  Country: US (occurrence: US)
  Receive Date: 20201216
  Receipt Date: 20201216
  Transmission Date: 20210114
  Serious: Yes (Hospitalization)
  Sender: FDA-Public Use
  Company Number: US-BAYER-2016-010465

PATIENT
  Age: 88 Year
  Sex: Female

DRUGS (3)
  1. XARELTO [Suspect]
     Active Substance: RIVAROXABAN
     Indication: PULMONARY EMBOLISM
     Dosage: 20 MG, UNK
     Route: 048
     Dates: start: 20130214, end: 20130305
  2. XARELTO [Suspect]
     Active Substance: RIVAROXABAN
     Indication: EMBOLISM VENOUS
  3. ACETYLSALICYLIC ACID [Suspect]
     Active Substance: ASPIRIN
     Indication: PULMONARY EMBOLISM
     Dosage: 81 MG, UNK
     Route: 065

REACTIONS (4)
  - Off label use [Unknown]
  - Internal haemorrhage [Unknown]
  - Incorrect dose administered [Unknown]
  - Musculoskeletal stiffness [Unknown]

NARRATIVE: CASE EVENT DATE: 20130214
